FAERS Safety Report 6294167-0 (Version None)
Quarter: 2009Q3

REPORT INFORMATION
  Report Type: 
  Country: None (occurrence: None)
  Receive Date: 20090803
  Receipt Date: 20090126
  Transmission Date: 20100115
  Serious: No
  Sender: FDA-Public Use
  Company Number: A0765208A

PATIENT
  Age: 34 Year
  Sex: Male

DRUGS (1)
  1. NICORETTE [Suspect]
     Dates: start: 20090101

REACTIONS (2)
  - ABDOMINAL PAIN UPPER [None]
  - ULCER [None]
